FAERS Safety Report 12508360 (Version 2)
Quarter: 2016Q3

REPORT INFORMATION
  Report Type: Spontaneous
  Country: US (occurrence: US)
  Receive Date: 20160629
  Receipt Date: 20160721
  Transmission Date: 20161109
  Serious: No
  Sender: FDA-Public Use
  Company Number: US-TAKEDA-2016MPI005749

PATIENT
  Sex: Male

DRUGS (6)
  1. FENTANYL. [Concomitant]
     Active Substance: FENTANYL
     Dosage: UNK
  2. DEXAMETHASONE. [Suspect]
     Active Substance: DEXAMETHASONE
     Dosage: 40 MG, UNK
     Route: 065
     Dates: start: 20160602
  3. ACYCLOVIR                          /00587301/ [Concomitant]
     Active Substance: ACYCLOVIR
     Dosage: 400 MG, UNK
  4. OXYCODONE                          /00045603/ [Concomitant]
     Active Substance: OXYCODONE
     Dosage: 15 MG, UNK
     Dates: start: 20151026
  5. NINLARO [Suspect]
     Active Substance: IXAZOMIB
     Indication: PLASMA CELL MYELOMA
     Dosage: 2.3 MG, UNK
     Route: 048
     Dates: start: 20160602
  6. DILAUDID [Concomitant]
     Active Substance: HYDROMORPHONE HYDROCHLORIDE
     Dosage: 2 MG, UNK
     Dates: start: 20151029

REACTIONS (3)
  - Off label use [Unknown]
  - No adverse event [Unknown]
  - Product blister packaging issue [Unknown]
